FAERS Safety Report 6134343-0 (Version None)
Quarter: 2009Q1

REPORT INFORMATION
  Report Type: 
  Country: None (occurrence: None)
  Receive Date: 20090327
  Receipt Date: 20090319
  Transmission Date: 20090719
  Serious: Yes (Hospitalization)
  Sender: FDA-Public Use
  Company Number: PHHY2009BR10398

PATIENT
  Age: 72 Year
  Sex: Male

DRUGS (3)
  1. FORASEQ [Suspect]
     Indication: EMPHYSEMA
     Dosage: 1 INHALATION OF EACH ACTIVE INGREDIENT EVERY 12 HOURS
     Dates: start: 20090316
  2. AEROCORT (SALBUTAMOL/BECLOMETASONE DIPROPIONATE) [Concomitant]
     Indication: DYSPNOEA
     Dosage: 1 INHALATION/DAY
  3. AMINOPHYLLINE [Concomitant]
     Indication: DYSPNOEA
     Dosage: 1 TIMES/DAY
     Route: 048

REACTIONS (5)
  - ABDOMINAL PAIN LOWER [None]
  - CONSTIPATION [None]
  - DISCOMFORT [None]
  - DYSURIA [None]
  - GASTRIC LAVAGE [None]
